FAERS Safety Report 8382082-8 (Version None)
Quarter: 2012Q1

REPORT INFORMATION
  Report Type: 
  Country: None (occurrence: None)
  Receive Date: 20120323
  Receipt Date: 20110613
  Transmission Date: 20120608
  Serious: Yes (Other)
  Sender: FDA-Public Use
  Company Number: 163-21880-11051741

PATIENT
  Age: 79 Year
  Sex: Male
  Weight: 106.6 kg

DRUGS (13)
  1. AMIODARONE HCL [Concomitant]
  2. REVLIMID [Suspect]
     Indication: MULTIPLE MYELOMA
     Dosage: 25 MG, DAILY FOR 21 DAYS ON THEN 7 DAYS OFF, PO
     Route: 048
     Dates: start: 20091103
  3. ALLEGRA [Concomitant]
  4. MULTIVITAMIN [Concomitant]
  5. ALDACTONE [Concomitant]
  6. IMDUR [Concomitant]
  7. ZOLOFT [Concomitant]
  8. AMBIEN [Concomitant]
  9. LISINOPRIL [Concomitant]
  10. COREG [Concomitant]
  11. PROPAFENON (PROPAFENONE HYDROCHLORIDE() [Concomitant]
  12. SINGULAIR [Concomitant]
  13. COUMADIN [Concomitant]

REACTIONS (2)
  - CARDIAC FAILURE CONGESTIVE [None]
  - CARDIOMYOPATHY [None]
